FAERS Safety Report 16855668 (Version 3)
Quarter: 2020Q3

REPORT INFORMATION
  Report Type: Spontaneous
  Country: US (occurrence: US)
  Receive Date: 20190926
  Receipt Date: 20200827
  Transmission Date: 20201102
  Serious: Yes (Hospitalization, Other)
  Sender: FDA-Public Use
  Company Number: US-GILEAD-2019-0429738

PATIENT
  Sex: Female
  Weight: 179 kg

DRUGS (54)
  1. ATRIPLA [Suspect]
     Active Substance: EFAVIRENZ\EMTRICITABINE\TENOFOVIR DISOPROXIL FUMARATE
     Indication: HIV INFECTION
     Dosage: UNK
     Route: 048
     Dates: start: 20090708, end: 20120812
  2. NORVIR [Concomitant]
     Active Substance: RITONAVIR
  3. TRIAMTERENE HCTZ [Concomitant]
     Active Substance: HYDROCHLOROTHIAZIDE\TRIAMTERENE
  4. LISINOPRIL. [Concomitant]
     Active Substance: LISINOPRIL
  5. ABILIFY [Concomitant]
     Active Substance: ARIPIPRAZOLE
  6. DEXAMETHASONE. [Concomitant]
     Active Substance: DEXAMETHASONE
  7. PREZCOBIX [Concomitant]
     Active Substance: COBICISTAT\DARUNAVIR ETHANOLATE
  8. ATENOLOL. [Concomitant]
     Active Substance: ATENOLOL
  9. FLUCONAZOLE. [Concomitant]
     Active Substance: FLUCONAZOLE
  10. SIMCORA [Concomitant]
     Active Substance: SIMVASTATIN
  11. SPIRONOLACTONE. [Concomitant]
     Active Substance: SPIRONOLACTONE
  12. CIPROFLOXACIN. [Concomitant]
     Active Substance: CIPROFLOXACIN
  13. CITALOPRAM [Concomitant]
     Active Substance: CITALOPRAM HYDROBROMIDE
  14. CLONAZEPAM. [Concomitant]
     Active Substance: CLONAZEPAM
  15. LOTENSINE [Concomitant]
     Active Substance: CAPTOPRIL
  16. METOCLOPRAMIDE. [Concomitant]
     Active Substance: METOCLOPRAMIDE
  17. PREZISTA [Concomitant]
     Active Substance: DARUNAVIR ETHANOLATE
  18. ESTRADIOL. [Concomitant]
     Active Substance: ESTRADIOL
  19. FENOFIBRATE. [Concomitant]
     Active Substance: FENOFIBRATE
  20. NIASPAN [Concomitant]
     Active Substance: NIACIN
  21. MAXALT [Concomitant]
     Active Substance: RIZATRIPTAN BENZOATE
  22. NAPROXEN. [Concomitant]
     Active Substance: NAPROXEN
  23. TIZANIDINE. [Concomitant]
     Active Substance: TIZANIDINE
  24. TRAMADOL. [Concomitant]
     Active Substance: TRAMADOL
  25. CYCLOBENZAPRINE. [Concomitant]
     Active Substance: CYCLOBENZAPRINE
  26. MYRBETRIQ [Concomitant]
     Active Substance: MIRABEGRON
  27. TRIUMEQ [Concomitant]
     Active Substance: ABACAVIR SULFATE\DOLUTEGRAVIR SODIUM\LAMIVUDINE
  28. METHOCARBAMOL. [Concomitant]
     Active Substance: METHOCARBAMOL
  29. DIVALPROEX [Concomitant]
     Active Substance: DIVALPROEX SODIUM
  30. PREDNISONE. [Concomitant]
     Active Substance: PREDNISONE
  31. ALBUTEROL [SALBUTAMOL] [Concomitant]
     Active Substance: ALBUTEROL
  32. AMITRIPTYLINE [Concomitant]
     Active Substance: AMITRIPTYLINE
  33. DIVALPROEX [Concomitant]
     Active Substance: DIVALPROEX SODIUM
  34. SYMBICORT [Concomitant]
     Active Substance: BUDESONIDE\FORMOTEROL FUMARATE DIHYDRATE
  35. DICLOFENAC [Concomitant]
     Active Substance: DICLOFENAC
  36. SAPHRIS [Concomitant]
     Active Substance: ASENAPINE MALEATE
  37. PROMETHAZINE [Concomitant]
     Active Substance: PROMETHAZINE HYDROCHLORIDE
  38. SIMVASTATIN. [Concomitant]
     Active Substance: SIMVASTATIN
  39. PANTOPRAZOLE [Concomitant]
     Active Substance: PANTOPRAZOLE
  40. DOXYCYCLINE. [Concomitant]
     Active Substance: DOXYCYCLINE
  41. LORAZEPAM. [Concomitant]
     Active Substance: LORAZEPAM
  42. TRUVADA [Suspect]
     Active Substance: EMTRICITABINE\TENOFOVIR DISOPROXIL FUMARATE
     Indication: HIV INFECTION
     Dosage: UNK
     Route: 048
     Dates: start: 20120907, end: 20141114
  43. TIVICAY [Concomitant]
     Active Substance: DOLUTEGRAVIR SODIUM
  44. TOLTERODINE [Concomitant]
     Active Substance: TOLTERODINE
  45. VALACYCLOVIR HCL [Concomitant]
     Active Substance: VALACYCLOVIR HYDROCHLORIDE
  46. IRBESARTAN. [Concomitant]
     Active Substance: IRBESARTAN
  47. GABAPENTIN. [Concomitant]
     Active Substance: GABAPENTIN
  48. LUNESTA [Concomitant]
     Active Substance: ESZOPICLONE
  49. PROTONIX [OMEPRAZOLE] [Concomitant]
     Active Substance: OMEPRAZOLE
  50. STRIBILD [Suspect]
     Active Substance: COBICISTAT\ELVITEGRAVIR\EMTRICITABINE\TENOFOVIR DISOPROXIL FUMARATE
     Indication: HIV INFECTION
     Dosage: UNK
     Route: 048
     Dates: start: 20141216, end: 20180302
  51. LISINOPRIL HCTZ [Concomitant]
     Active Substance: HYDROCHLOROTHIAZIDE\LISINOPRIL
  52. HCTZ [Concomitant]
     Active Substance: HYDROCHLOROTHIAZIDE
  53. IMITREX [Concomitant]
     Active Substance: SUMATRIPTAN SUCCINATE
  54. BENZONATATE. [Concomitant]
     Active Substance: BENZONATATE

REACTIONS (15)
  - Protein urine present [Recovered/Resolved]
  - Quality of life decreased [Unknown]
  - Bone density decreased [Not Recovered/Not Resolved]
  - Emotional distress [Not Recovered/Not Resolved]
  - Mobility decreased [Not Recovered/Not Resolved]
  - Chronic kidney disease [Not Recovered/Not Resolved]
  - Fracture [Recovered/Resolved]
  - Decreased activity [Unknown]
  - Anxiety [Not Recovered/Not Resolved]
  - Loss of personal independence in daily activities [Unknown]
  - Renal failure [Unknown]
  - Pain [Not Recovered/Not Resolved]
  - Fear [Unknown]
  - Anhedonia [Not Recovered/Not Resolved]
  - Economic problem [Not Recovered/Not Resolved]

NARRATIVE: CASE EVENT DATE: 2017
